FAERS Safety Report 24913844 (Version 1)
Quarter: 2025Q1

REPORT INFORMATION
  Report Type: Spontaneous
  Country: US (occurrence: US)
  Receive Date: 20250202
  Receipt Date: 20250202
  Transmission Date: 20250408
  Serious: No
  Sender: MERCK
  Company Number: US-009507513-2501USA011225

PATIENT
  Age: 22 Year
  Sex: Male

DRUGS (10)
  1. KEYTRUDA [Suspect]
     Active Substance: PEMBROLIZUMAB
     Indication: Osteosarcoma
  2. KEYTRUDA [Suspect]
     Active Substance: PEMBROLIZUMAB
     Indication: Metastases to pleura
  3. EVEROLIMUS [Concomitant]
     Active Substance: EVEROLIMUS
     Indication: Osteosarcoma
  4. EVEROLIMUS [Concomitant]
     Active Substance: EVEROLIMUS
     Indication: Metastases to pleura
  5. GEMCITABINE [Concomitant]
     Active Substance: GEMCITABINE
     Indication: Osteosarcoma
  6. GEMCITABINE [Concomitant]
     Active Substance: GEMCITABINE
     Indication: Metastases to pleura
  7. DOCETAXEL [Concomitant]
     Active Substance: DOCETAXEL
     Indication: Osteosarcoma
  8. DOCETAXEL [Concomitant]
     Active Substance: DOCETAXEL
     Indication: Metastases to pleura
  9. REGORAFENIB [Concomitant]
     Active Substance: REGORAFENIB
     Indication: Osteosarcoma
  10. REGORAFENIB [Concomitant]
     Active Substance: REGORAFENIB
     Indication: Metastases to pleura

REACTIONS (1)
  - Product use issue [Unknown]
